FAERS Safety Report 4788799-6 (Version None)
Quarter: 2005Q3

REPORT INFORMATION
  Report Type: 
  Country: None (occurrence: None)
  Receive Date: 20050915
  Receipt Date: 20050627
  Transmission Date: 20060218
  Serious: No
  Sender: FDA-Public Use
  Company Number: BDI-007332

PATIENT
  Age: 18 Year
  Sex: Female
  Weight: 59 kg

DRUGS (2)
  1. MULTIHANCE [Suspect]
     Indication: ARTERIOGRAM RENAL
     Dosage: 40 ML ONCE IV
     Route: 042
     Dates: start: 20050623, end: 20050623
  2. MULTIHANCE [Suspect]
     Indication: NUCLEAR MAGNETIC RESONANCE IMAGING
     Dosage: 40 ML ONCE IV
     Route: 042
     Dates: start: 20050623, end: 20050623

REACTIONS (2)
  - DYSPNOEA [None]
  - SNEEZING [None]
